FAERS Safety Report 20883063 (Version 2)
Quarter: 2022Q2

REPORT INFORMATION
  Report Type: Spontaneous
  Country: NZ (occurrence: NZ)
  Receive Date: 20220527
  Receipt Date: 20220601
  Transmission Date: 20220721
  Serious: Yes (Death, Life-Threatening, Hospitalization, Other)
  Sender: FDA-Public Use
  Company Number: NZ-MYLANLABS-2022M1039465

PATIENT
  Age: 44 Year
  Sex: Female

DRUGS (4)
  1. CLOZARIL [Suspect]
     Active Substance: CLOZAPINE
     Indication: Schizophrenia
     Dosage: UNK
     Route: 048
     Dates: start: 19940527, end: 20220516
  2. CLOZARIL [Suspect]
     Active Substance: CLOZAPINE
     Dosage: 25 MILLIGRAM (3 TABLETS LUNCH TIME 2 TABLETS NOCTE)
     Route: 048
  3. CLOZARIL [Suspect]
     Active Substance: CLOZAPINE
     Dosage: 100 MILLIGRAM, PM (2 TABLETS NOCTE)
     Route: 048
     Dates: end: 20220516
  4. RISPERIDONE [Concomitant]
     Active Substance: RISPERIDONE
     Indication: Schizophrenia
     Dosage: 1 MILLIGRAM, BID
     Route: 048
     Dates: end: 20220516

REACTIONS (2)
  - Pulmonary embolism [Fatal]
  - Acute cardiac event [Fatal]

NARRATIVE: CASE EVENT DATE: 20220516
